FAERS Safety Report 4626104-6 (Version None)
Quarter: 2005Q2

REPORT INFORMATION
  Report Type: 
  Country: None (occurrence: None)
  Receive Date: 20050404
  Receipt Date: 20050323
  Transmission Date: 20051028
  Serious: Yes (Hospitalization)
  Sender: FDA-Public Use
  Company Number: US-BRISTOL-MYERS SQUIBB COMPANY-12909867

PATIENT
  Age: 60 Year
  Sex: Male

DRUGS (17)
  1. CISPLATIN [Suspect]
     Indication: CHEMOTHERAPY
     Route: 042
     Dates: start: 20040629, end: 20040629
  2. LOPERAMIDE HCL [Concomitant]
     Indication: CONSTIPATION
     Route: 048
     Dates: start: 20040510
  3. KETOROLAC [Concomitant]
     Indication: SCIATICA
     Route: 048
     Dates: start: 20040605
  4. OXYCODONE [Concomitant]
     Indication: PAIN
     Route: 048
     Dates: start: 20040315
  5. METHYLPREDNISOLONE [Concomitant]
     Indication: PAIN
     Route: 048
     Dates: start: 20040611
  6. MORPHINE SULFATE [Concomitant]
     Indication: PAIN
     Route: 048
     Dates: start: 20040612
  7. TRIAMTERENE [Concomitant]
     Indication: BLOOD PRESSURE
     Route: 048
     Dates: start: 20020101
  8. VITAMIN A [Concomitant]
     Indication: VITAMIN SUPPLEMENTATION
     Route: 048
     Dates: start: 20040427
  9. MULTI-VITAMIN [Concomitant]
     Indication: VITAMIN SUPPLEMENTATION
     Route: 048
     Dates: start: 20040508
  10. TYLENOL PM [Concomitant]
     Indication: INSOMNIA
     Route: 048
     Dates: start: 20040529
  11. CYCLOBENZAPRINE HCL [Concomitant]
     Indication: MUSCLE RELAXANT THERAPY
     Route: 048
     Dates: start: 20040605
  12. NEUPOGEN [Concomitant]
     Indication: NEUTROPENIA
     Route: 058
     Dates: start: 20040720, end: 20040721
  13. MEGESTROL ACETATE [Concomitant]
     Indication: ANOREXIA
     Route: 048
     Dates: start: 20040516
  14. TEMAZEPAM [Concomitant]
     Indication: INSOMNIA
     Route: 048
     Dates: start: 20040527
  15. SERTRALINE HCL [Concomitant]
     Indication: DEPRESSION
     Route: 048
     Dates: start: 20040323
  16. ONDANSETRON HCL [Concomitant]
     Indication: VOMITING
     Route: 048
     Dates: start: 20040328
  17. ARANESP [Concomitant]
     Indication: ANAEMIA
     Route: 058
     Dates: start: 20040726, end: 20040726

REACTIONS (4)
  - ASTHENIA [None]
  - DIARRHOEA [None]
  - FATIGUE [None]
  - RENAL FAILURE ACUTE [None]
